FAERS Safety Report 13869048 (Version 2)
Quarter: 2019Q4

REPORT INFORMATION
  Report Type: Report from Study
  Country: None (occurrence: US)
  Receive Date: 20170815
  Receipt Date: 20191003
  Transmission Date: 20200122
  Serious: Yes (Hospitalization)
  Sender: FDA-Public Use
  Company Number: US-VISTAPHARM, INC.-VER201708-000291

PATIENT
  Age: 57 Year
  Sex: Male
  Weight: 79.82 kg

DRUGS (8)
  1. MEDI-4736 [Suspect]
     Active Substance: DURVALUMAB
     Route: 042
     Dates: start: 20170619, end: 20170627
  2. MORPHINE [Suspect]
     Active Substance: MORPHINE
     Dosage: 275 MG UNSPECIFIED RATE
     Route: 042
     Dates: start: 20170624, end: 20170630
  3. MORPHINE [Suspect]
     Active Substance: MORPHINE
     Dosage: 6 MG
     Route: 042
     Dates: start: 20170615, end: 20170617
  4. INCB024360 [Suspect]
     Active Substance: EPACADOSTAT
     Dosage: TABLET
     Route: 048
     Dates: start: 20170619, end: 20170627
  5. MEDI-4736 [Suspect]
     Active Substance: DURVALUMAB
     Indication: TRANSITIONAL CELL CARCINOMA
     Dosage: 10 MG/KG IN EVERY TWO WEEKS
     Route: 042
     Dates: start: 20170526, end: 20170607
  6. INCB024360 [Suspect]
     Active Substance: EPACADOSTAT
     Indication: TRANSITIONAL CELL CARCINOMA
     Dosage: 300 MG, TWICE DAILY
     Route: 048
     Dates: start: 20170526, end: 20170607
  7. METHADONE [Suspect]
     Active Substance: METHADONE HYDROCHLORIDE
     Indication: PAIN
     Dosage: 5 MG IN EVERY EIGHT HOURS
     Route: 048
     Dates: start: 20170615, end: 20170624
  8. MORPHINE [Suspect]
     Active Substance: MORPHINE
     Indication: PAIN
     Dosage: 15 MG IN EVERY FOUR HOURS
     Route: 048
     Dates: start: 201704, end: 20170624

REACTIONS (4)
  - Tumour pain [Recovered/Resolved]
  - Urinary tract infection [Recovered/Resolved with Sequelae]
  - Delirium [Recovered/Resolved]
  - Tumour pain [Recovered/Resolved]

NARRATIVE: CASE EVENT DATE: 20170614
